FAERS Safety Report 8490965-3 (Version None)
Quarter: 2012Q3

REPORT INFORMATION
  Report Type: 
  Country: None (occurrence: None)
  Receive Date: 20120706
  Receipt Date: 20120626
  Transmission Date: 20120928
  Serious: Yes (Hospitalization)
  Sender: FDA-Public Use
  Company Number: GB-ACCORD-013965

PATIENT
  Age: 54 Year
  Sex: Male
  Weight: 100 kg

DRUGS (2)
  1. TEGRETOL [Concomitant]
     Dosage: LONG TERM
  2. QUETIAPINE FUMARATE [Suspect]
     Route: 048
     Dates: start: 20120201

REACTIONS (2)
  - PULMONARY EMBOLISM [None]
  - PAIN IN EXTREMITY [None]
